FAERS Safety Report 8979512 (Version 1)
Quarter: 2012Q4

REPORT INFORMATION
  Report Type: 
  Country: GB (occurrence: GB)
  Receive Date: 20121221
  Receipt Date: 20121221
  Transmission Date: 20130627
  Serious: Yes (Hospitalization)
  Sender: FDA-Public Use
  Company Number: GB-BANPHARM-20120448

PATIENT
  Age: 88 Year
  Sex: Female
  Weight: 43.9 kg

DRUGS (1)
  1. IBUPROFEN UNKNOWN PRODUCT [Suspect]
     Indication: MOBILITY DECREASED
     Dosage: 400 mg, BID,
     Route: 048
     Dates: start: 20121119, end: 20121121

REACTIONS (2)
  - Stevens-Johnson syndrome [Not Recovered/Not Resolved]
  - Rash [Unknown]
